FAERS Safety Report 4829349-5 (Version None)
Quarter: 2005Q4

REPORT INFORMATION
  Report Type: 
  Country: None (occurrence: None)
  Receive Date: 20051116
  Receipt Date: 20051109
  Transmission Date: 20060501
  Serious: Yes (Hospitalization)
  Sender: FDA-Public Use
  Company Number: 2005CG01846

PATIENT
  Age: 80 Year
  Sex: Female

DRUGS (3)
  1. ARIMIDEX [Suspect]
     Indication: BREAST CANCER
     Route: 048
     Dates: start: 20040510
  2. ENDOTELON [Concomitant]
     Route: 048
     Dates: end: 20050811
  3. VASTAREL [Concomitant]
     Route: 048
     Dates: end: 20050811

REACTIONS (8)
  - ASTHENIA [None]
  - DIPLOPIA [None]
  - FATIGUE [None]
  - MUSCULAR WEAKNESS [None]
  - NEUROLOGICAL SYMPTOM [None]
  - PAIN IN EXTREMITY [None]
  - PARAESTHESIA [None]
  - WEIGHT INCREASED [None]
